FAERS Safety Report 22108713 (Version 1)
Quarter: 2023Q1

REPORT INFORMATION
  Report Type: Spontaneous
  Country: AT (occurrence: AT)
  Receive Date: 20230317
  Receipt Date: 20230317
  Transmission Date: 20230417
  Serious: Yes (Other)
  Sender: FDA-Public Use
  Company Number: AT-GLAXOSMITHKLINE-AT2023EME040165

PATIENT

DRUGS (1)
  1. JEMPERLI [Suspect]
     Active Substance: DOSTARLIMAB-GXLY
     Indication: Endometrial cancer metastatic
     Dosage: UNK
     Dates: start: 202207

REACTIONS (1)
  - Immune-mediated hypothyroidism [Recovering/Resolving]

NARRATIVE: CASE EVENT DATE: 20220901
